FAERS Safety Report 11460785 (Version 3)
Quarter: 2015Q4

REPORT INFORMATION
  Report Type: Report from Study
  Country: CH (occurrence: CH)
  Receive Date: 20150904
  Receipt Date: 20151006
  Transmission Date: 20160304
  Serious: Yes (Death, Other)
  Sender: FDA-Public Use
  Company Number: CH-BRISTOL-MYERS SQUIBB COMPANY-BMS-2015-056761

PATIENT
  Age: 66 Year
  Sex: Female

DRUGS (6)
  1. ZOLPIDEM [Concomitant]
     Active Substance: ZOLPIDEM\ZOLPIDEM TARTRATE
     Indication: PRODUCT USED FOR UNKNOWN INDICATION
     Route: 065
  2. CRESTOR [Concomitant]
     Active Substance: ROSUVASTATIN CALCIUM
     Indication: PRODUCT USED FOR UNKNOWN INDICATION
     Route: 065
  3. BELOKAST [Concomitant]
     Indication: PRODUCT USED FOR UNKNOWN INDICATION
     Route: 065
  4. NIVOLUMAB [Suspect]
     Active Substance: NIVOLUMAB
     Indication: NON-SMALL CELL LUNG CANCER
     Dosage: 170 MG, Q2WK
     Route: 042
     Dates: start: 20150626
  5. NIVOLUMAB [Suspect]
     Active Substance: NIVOLUMAB
     Dosage: 172 MG, Q2WK
     Route: 042
     Dates: start: 20150626
  6. ARANESP [Concomitant]
     Active Substance: DARBEPOETIN ALFA
     Indication: PRODUCT USED FOR UNKNOWN INDICATION
     Route: 065

REACTIONS (3)
  - Sudden death [Fatal]
  - Pulmonary embolism [Fatal]
  - Cerebral haemorrhage [Fatal]
